FAERS Safety Report 14011393 (Version 1)
Quarter: 2017Q3

REPORT INFORMATION
  Report Type: Spontaneous
  Country: US (occurrence: None)
  Receive Date: 20170926
  Receipt Date: 20170926
  Transmission Date: 20171128
  Serious: Yes (Hospitalization)
  Sender: FDA-Public Use
  Company Number: None

PATIENT
  Age: 57 Year
  Sex: Male
  Weight: 104.78 kg

DRUGS (33)
  1. DULERA [Concomitant]
     Active Substance: FORMOTEROL FUMARATE DIHYDRATE\MOMETASONE FUROATE
  2. FLUOXEMIDE [Concomitant]
  3. NITROGLYCERIN. [Concomitant]
     Active Substance: NITROGLYCERIN
  4. PRAZOSIN. [Concomitant]
     Active Substance: PRAZOSIN
  5. CLEOCIN T 15 [Concomitant]
  6. LATUDA [Concomitant]
     Active Substance: LURASIDONE HYDROCHLORIDE
  7. MUPIROCIN. [Concomitant]
     Active Substance: MUPIROCIN
  8. OMEGA 3 FATTY ACIDS FISH OIL [Concomitant]
  9. PANTOPRAZOLE [Concomitant]
     Active Substance: PANTOPRAZOLE
  10. VENTOLIN HFA [Concomitant]
     Active Substance: ALBUTEROL SULFATE
  11. ALBUTEROL. [Concomitant]
     Active Substance: ALBUTEROL
  12. BUSPIRONE [Concomitant]
     Active Substance: BUSPIRONE HYDROCHLORIDE
  13. DICYCLOMINE [Concomitant]
     Active Substance: DICYCLOMINE HYDROCHLORIDE
  14. NORCO [Concomitant]
     Active Substance: ACETAMINOPHEN\HYDROCODONE BITARTRATE
  15. METHOCARBAMOL. [Concomitant]
     Active Substance: METHOCARBAMOL
  16. AZITHROMYCIN ANHYDROUS. [Concomitant]
     Active Substance: AZITHROMYCIN ANHYDROUS
  17. FLUTICASONE. [Concomitant]
     Active Substance: FLUTICASONE
  18. GABAPENTIN. [Concomitant]
     Active Substance: GABAPENTIN
  19. LORATADINE. [Concomitant]
     Active Substance: LORATADINE
  20. MONTELUKAST [Concomitant]
     Active Substance: MONTELUKAST SODIUM
  21. SPIRIVA RESPIMAT [Concomitant]
     Active Substance: TIOTROPIUM BROMIDE
  22. NICOTINE. [Concomitant]
     Active Substance: NICOTINE
  23. ASPIRIN. [Concomitant]
     Active Substance: ASPIRIN
  24. ATORVASTATIN [Concomitant]
     Active Substance: ATORVASTATIN
  25. PREDNISONE. [Concomitant]
     Active Substance: PREDNISONE
  26. MAGNESIUM OXIDE. [Concomitant]
     Active Substance: MAGNESIUM OXIDE
  27. METFORMIN [Concomitant]
     Active Substance: METFORMIN HYDROCHLORIDE
  28. FINASTERIDE. [Concomitant]
     Active Substance: FINASTERIDE
  29. GLIPIZIDE. [Concomitant]
     Active Substance: GLIPIZIDE
  30. LISINOPRIL. [Concomitant]
     Active Substance: LISINOPRIL
  31. NAPROXEN. [Concomitant]
     Active Substance: NAPROXEN
  32. QUETIAPINE. [Concomitant]
     Active Substance: QUETIAPINE
  33. ZEPATIER [Suspect]
     Active Substance: ELBASVIR\GRAZOPREVIR
     Indication: HEPATITIS C
     Route: 048
     Dates: start: 20170727

REACTIONS (5)
  - Dyspnoea exertional [None]
  - Dyspnoea [None]
  - Cough [None]
  - Self-medication [None]
  - Sputum discoloured [None]

NARRATIVE: CASE EVENT DATE: 20170915
